FAERS Safety Report 21789339 (Version 1)
Quarter: 2022Q4

REPORT INFORMATION
  Report Type: Report from Study
  Country: US (occurrence: US)
  Receive Date: 20221228
  Receipt Date: 20221228
  Transmission Date: 20230113
  Serious: Yes (Other)
  Sender: FDA-Public Use
  Company Number: US-OTSUKA-2022_052671

PATIENT
  Age: 64 Year
  Sex: Female
  Weight: 68.95 kg

DRUGS (2)
  1. TOLVAPTAN [Suspect]
     Active Substance: TOLVAPTAN
     Indication: Congenital cystic kidney disease
     Dosage: 15 MG, QD UPON WAKING
     Route: 048
  2. TOLVAPTAN [Suspect]
     Active Substance: TOLVAPTAN
     Indication: Congenital cystic kidney disease
     Dosage: 15 MG, QD 8 HOURS LATER
     Route: 048

REACTIONS (5)
  - Parathyroid gland operation [Unknown]
  - Pruritus [Unknown]
  - Transaminases increased [Recovering/Resolving]
  - Blood alkaline phosphatase increased [Recovering/Resolving]
  - Underdose [Unknown]

NARRATIVE: CASE EVENT DATE: 20221104
